FAERS Safety Report 23953793 (Version 1)
Quarter: 2024Q2

REPORT INFORMATION
  Report Type: Spontaneous
  Country: US (occurrence: US)
  Receive Date: 20240609
  Receipt Date: 20240609
  Transmission Date: 20240716
  Serious: Yes (Other)
  Sender: FDA-Public Use
  Company Number: US-DRL-USA-LIT/USA/24/0008265

PATIENT
  Age: 35 Year
  Sex: Female

DRUGS (4)
  1. DOXYCYCLINE [Suspect]
     Active Substance: DOXYCYCLINE\DOXYCYCLINE HYCLATE
     Indication: Perioral dermatitis
  2. CLOBETASOL [Concomitant]
     Active Substance: CLOBETASOL
     Indication: Lichen sclerosus
     Route: 061
  3. METHOTREXATE [Concomitant]
     Active Substance: METHOTREXATE
     Indication: Lichen sclerosus
  4. FOLIC ACID [Concomitant]
     Active Substance: FOLIC ACID
     Indication: Lichen sclerosus

REACTIONS (2)
  - Oesophagitis [Unknown]
  - Product use in unapproved indication [Unknown]
